FAERS Safety Report 7706131-2 (Version None)
Quarter: 2011Q3

REPORT INFORMATION
  Report Type: 
  Country: None (occurrence: None)
  Receive Date: 20110824
  Receipt Date: 20110817
  Transmission Date: 20111222
  Serious: Yes (Hospitalization)
  Sender: FDA-Public Use
  Company Number: US-AMGEN-USASP2011041846

PATIENT
  Age: 68 Year
  Sex: Female

DRUGS (3)
  1. ENBREL [Suspect]
     Indication: OSTEOARTHRITIS
  2. ENBREL [Suspect]
     Indication: RHEUMATOID ARTHRITIS
     Dosage: 50 MG, QWK
     Dates: start: 19990101
  3. TREXALL [Concomitant]
     Dosage: 1 MG, QWK
     Dates: start: 19990101

REACTIONS (3)
  - SCIATICA [None]
  - OSTEOARTHRITIS [None]
  - INJECTION SITE PAIN [None]
